FAERS Safety Report 7827615-2 (Version None)
Quarter: 2011Q4

REPORT INFORMATION
  Report Type: 
  Country: None (occurrence: None)
  Receive Date: 20111020
  Receipt Date: 20111017
  Transmission Date: 20120403
  Serious: Yes (Other)
  Sender: FDA-Public Use
  Company Number: CH-ROCHE-1005391

PATIENT
  Age: 57 Year
  Sex: Female

DRUGS (2)
  1. BEVACIZUMAB [Suspect]
     Indication: BREAST CANCER
     Dates: start: 20080301, end: 20090201
  2. DOXORUBICIN HCL [Concomitant]

REACTIONS (1)
  - TYPE IIB HYPERLIPIDAEMIA [None]
